FAERS Safety Report 8835168 (Version 1)
Quarter: 2012Q4

REPORT INFORMATION
  Report Type: Report from Study
  Country: CA (occurrence: CA)
  Receive Date: 20121011
  Receipt Date: 20121011
  Transmission Date: 20130627
  Serious: Yes (Other)
  Sender: FDA-Public Use
  Company Number: CA-JNJFOC-20121002120

PATIENT
  Age: 63 Year
  Sex: Male
  Weight: 87 kg

DRUGS (6)
  1. REMICADE [Suspect]
     Indication: COLITIS ULCERATIVE
     Route: 042
     Dates: start: 20090714
  2. REMICADE [Suspect]
     Indication: COLITIS ULCERATIVE
     Dosage: 21st infusion
     Route: 042
     Dates: start: 20121002
  3. IMURAN [Concomitant]
     Route: 048
  4. METFORMIN [Concomitant]
     Route: 065
  5. CYMBALTA [Concomitant]
     Route: 065
  6. INSULIN [Concomitant]
     Route: 065

REACTIONS (5)
  - Loss of consciousness [Recovered/Resolved]
  - Injury [Recovered/Resolved]
  - Musculoskeletal stiffness [Recovered/Resolved]
  - Nausea [Recovered/Resolved]
  - Headache [Recovered/Resolved]
